FAERS Safety Report 25937742 (Version 3)
Quarter: 2025Q4

REPORT INFORMATION
  Report Type: Report from Study
  Country: US (occurrence: US)
  Receive Date: 20251018
  Receipt Date: 20251113
  Transmission Date: 20260118
  Serious: Yes (Other)
  Sender: ABBVIE
  Company Number: US-ABBVIE-6506249

PATIENT
  Age: 76 Year
  Sex: Female
  Weight: 39.766 kg

DRUGS (4)
  1. SKYRIZI [Suspect]
     Active Substance: RISANKIZUMAB-RZAA
     Indication: Crohn^s disease
     Route: 058
     Dates: start: 20230117
  2. COREG [Concomitant]
     Active Substance: CARVEDILOL
     Indication: Hypertension
     Route: 065
  3. SYNTHROID [Concomitant]
     Active Substance: LEVOTHYROXINE SODIUM
     Indication: Thyroid disorder
     Route: 065
  4. ASPIRIN [Concomitant]
     Active Substance: ASPIRIN
     Indication: Product used for unknown indication
     Route: 065

REACTIONS (11)
  - Gingival discomfort [Recovering/Resolving]
  - Jaw disorder [Recovering/Resolving]
  - Carpal tunnel syndrome [Recovering/Resolving]
  - Arthralgia [Recovered/Resolved]
  - Neck pain [Recovered/Resolved]
  - Limb discomfort [Recovering/Resolving]
  - Burning sensation [Recovering/Resolving]
  - Back pain [Recovered/Resolved]
  - Peripheral nerve injury [Recovering/Resolving]
  - Pain in extremity [Recovering/Resolving]
  - Road traffic accident [Unknown]

NARRATIVE: CASE EVENT DATE: 20240101
